FAERS Safety Report 12457132 (Version 4)
Quarter: 2016Q4

REPORT INFORMATION
  Report Type: Report from Study
  Country: US (occurrence: US)
  Receive Date: 20160610
  Receipt Date: 20161007
  Transmission Date: 20170207
  Serious: Yes (Hospitalization, Other)
  Sender: FDA-Public Use
  Company Number: US-GILEAD-2016-0218083

PATIENT
  Age: 45 Year
  Sex: Female
  Weight: 66 kg

DRUGS (23)
  1. LEVOTHYROXINE. [Concomitant]
     Active Substance: LEVOTHYROXINE
  2. POTASSIUM [Concomitant]
     Active Substance: POTASSIUM
  3. VANTIN                             /00139502/ [Concomitant]
  4. ALDACTONE [Concomitant]
     Active Substance: SPIRONOLACTONE
  5. SILDENAFIL. [Concomitant]
     Active Substance: SILDENAFIL
  6. DOXORUBICIN [Concomitant]
     Active Substance: DOXORUBICIN
  7. ZARXIO [Concomitant]
     Active Substance: FILGRASTIM-SNDZ
  8. LASIX [Concomitant]
     Active Substance: FUROSEMIDE
  9. ATIVAN [Concomitant]
     Active Substance: LORAZEPAM
  10. NELARABINE [Concomitant]
     Active Substance: NELARABINE
  11. REVATIO [Concomitant]
     Active Substance: SILDENAFIL CITRATE
  12. ACYCLOVIR                          /00587301/ [Concomitant]
     Active Substance: ACYCLOVIR
  13. TYVASO [Concomitant]
     Active Substance: TREPROSTINIL
  14. COMPAZINE                          /00013302/ [Concomitant]
     Active Substance: PROCHLORPERAZINE EDISYLATE
  15. VINCRISTINE [Concomitant]
     Active Substance: VINCRISTINE
  16. AMBRISENTAN [Suspect]
     Active Substance: AMBRISENTAN
     Indication: PULMONARY HYPERTENSION
     Dosage: 10 MG, QD
     Route: 065
     Dates: start: 20091127
  17. DIFLUCAN [Concomitant]
     Active Substance: FLUCONAZOLE
  18. MORPHINE [Concomitant]
     Active Substance: MORPHINE
  19. DEXAMETHASONE. [Concomitant]
     Active Substance: DEXAMETHASONE
  20. KCL [Concomitant]
     Active Substance: POTASSIUM CHLORIDE
  21. AMBRISENTAN [Suspect]
     Active Substance: AMBRISENTAN
     Indication: DECREASED APPETITE
  22. LEVOFLOXACIN. [Concomitant]
     Active Substance: LEVOFLOXACIN
  23. FUROSEMIDE. [Concomitant]
     Active Substance: FUROSEMIDE

REACTIONS (5)
  - Product use issue [Not Recovered/Not Resolved]
  - Febrile neutropenia [Unknown]
  - Lymphoma [Not Recovered/Not Resolved]
  - Headache [Not Recovered/Not Resolved]
  - Dyspnoea [Not Recovered/Not Resolved]

NARRATIVE: CASE EVENT DATE: 20160906
